FAERS Safety Report 5640162-1 (Version None)
Quarter: 2008Q1

REPORT INFORMATION
  Report Type: 
  Country: None (occurrence: None)
  Receive Date: 20080227
  Receipt Date: 20080110
  Transmission Date: 20080703
  Serious: No
  Sender: FDA-Public Use
  Company Number: US-BAXTER-2008BH000121

PATIENT
  Age: 47 Year
  Sex: Female
  Weight: 53 kg

DRUGS (8)
  1. HEPARIN SODIUM [Suspect]
     Indication: ANTICOAGULANT THERAPY
     Route: 042
  2. TUMS [Concomitant]
     Indication: BLOOD CALCIUM
     Route: 048
  3. SENSIPAR [Concomitant]
     Indication: HYPERPARATHYROIDISM SECONDARY
     Route: 048
  4. PHOSLO [Concomitant]
     Indication: HYPERPHOSPHATAEMIA
     Route: 048
  5. PRILOSEC [Concomitant]
     Indication: GASTROOESOPHAGEAL REFLUX DISEASE
     Route: 048
  6. ZEMPLAR [Concomitant]
     Indication: HYPERPARATHYROIDISM SECONDARY
     Route: 042
  7. VENOFER [Concomitant]
     Indication: ANAEMIA
     Route: 042
  8. EPOGEN [Concomitant]
     Indication: ANAEMIA
     Route: 042

REACTIONS (8)
  - BLOOD CULTURE POSITIVE [None]
  - DYSPNOEA [None]
  - FEELING HOT [None]
  - FLUSHING [None]
  - HYPERHIDROSIS [None]
  - NAUSEA [None]
  - RETCHING [None]
  - THIRST [None]
